FAERS Safety Report 10595603 (Version 1)
Quarter: 2014Q4

REPORT INFORMATION
  Report Type: Spontaneous
  Country: IT (occurrence: IT)
  Receive Date: 20141120
  Receipt Date: 20141120
  Transmission Date: 20150529
  Serious: Yes (Hospitalization, Other)
  Sender: FDA-Public Use
  Company Number: IT-ASTRAZENECA-2014SE86613

PATIENT
  Age: 25226 Day
  Sex: Female

DRUGS (8)
  1. ANTRA [Concomitant]
     Active Substance: OMEPRAZOLE
  2. METFORMIN [Concomitant]
     Active Substance: METFORMIN HYDROCHLORIDE
  3. ZYLORIC [Concomitant]
     Active Substance: ALLOPURINOL
  4. TORVAST [Concomitant]
     Active Substance: ATORVASTATIN
  5. PLAUNAC [Concomitant]
     Active Substance: OLMESARTAN MEDOXOMIL
  6. CARDIRENE [Suspect]
     Active Substance: ASPIRIN DL-LYSINE
     Indication: CORONARY ANGIOPLASTY
     Route: 048
     Dates: start: 20140301, end: 20141111
  7. LASIX [Concomitant]
     Active Substance: FUROSEMIDE
  8. BRILIQUE [Suspect]
     Active Substance: TICAGRELOR
     Indication: CORONARY ANGIOPLASTY
     Route: 048
     Dates: start: 20140301, end: 20141111

REACTIONS (2)
  - Blood pressure increased [Unknown]
  - Cerebral haemorrhage [Recovering/Resolving]

NARRATIVE: CASE EVENT DATE: 20141106
